FAERS Safety Report 16685566 (Version 2)
Quarter: 2019Q3

REPORT INFORMATION
  Report Type: Spontaneous
  Country: US (occurrence: US)
  Receive Date: 20190809
  Receipt Date: 20190830
  Transmission Date: 20191004
  Serious: No
  Sender: FDA-Public Use
  Company Number: US-SA-2019SA212451

PATIENT
  Age: 54 Year
  Sex: Male

DRUGS (10)
  1. NAPROXEN. [Concomitant]
     Active Substance: NAPROXEN
  2. FEROSOL [Concomitant]
     Active Substance: IRON
  3. DUPIXENT [Suspect]
     Active Substance: DUPILUMAB
     Indication: DERMATITIS ATOPIC
     Dosage: 300 MG, QOW
     Route: 058
     Dates: start: 20190122
  4. VIBERZI [Concomitant]
     Active Substance: ELUXADOLINE
  5. CEPHALEXIN [CEFALEXIN] [Concomitant]
     Active Substance: CEPHALEXIN
  6. ZOLPIDEM [Concomitant]
     Active Substance: ZOLPIDEM TARTRATE
  7. OLOPATADINE. [Concomitant]
     Active Substance: OLOPATADINE
  8. MYRBETRIQ [Concomitant]
     Active Substance: MIRABEGRON
  9. AZELASTINE. [Concomitant]
     Active Substance: AZELASTINE HYDROCHLORIDE
  10. KETOCONAZOLE. [Concomitant]
     Active Substance: KETOCONAZOLE

REACTIONS (4)
  - Eye pruritus [Unknown]
  - Product dose omission [Unknown]
  - Eye discharge [Unknown]
  - Pruritus [Not Recovered/Not Resolved]
